FAERS Safety Report 15602453 (Version 1)
Quarter: 2018Q4

REPORT INFORMATION
  Report Type: Spontaneous
  Country: US (occurrence: US)
  Receive Date: 20181105
  Receipt Date: 20181105
  Transmission Date: 20190205
  Serious: Yes (Hospitalization, Other)
  Sender: FDA-Public Use
  Company Number: None

PATIENT
  Age: 57 Year
  Sex: Male
  Weight: 83.91 kg

DRUGS (10)
  1. ROSUVASTATIN. [Concomitant]
     Active Substance: ROSUVASTATIN
  2. VIT B COMPLEX [Concomitant]
  3. AMLODIPINE/VALSARTAN 10-160MG TAB [Suspect]
     Active Substance: AMLODIPINE\VALSARTAN
     Indication: HYPERTENSION
     Dosage: ?          QUANTITY:1 DF DOSAGE FORM;?
     Route: 048
     Dates: start: 20171228, end: 20180826
  4. LANTUS [Concomitant]
     Active Substance: INSULIN GLARGINE
  5. CALCIUM [Concomitant]
     Active Substance: CALCIUM
  6. CIALIS [Concomitant]
     Active Substance: TADALAFIL
  7. TESTOSTERONE. [Concomitant]
     Active Substance: TESTOSTERONE
  8. TADALAFIL. [Concomitant]
     Active Substance: TADALAFIL
  9. MULTIVITAMIN [Concomitant]
     Active Substance: VITAMINS
  10. OXYDODONE-ACETAMINOPEHN [Concomitant]

REACTIONS (3)
  - Haemorrhage [None]
  - Pain in extremity [None]
  - Surgery [None]
